FAERS Safety Report 10957155 (Version 1)
Quarter: 2015Q1

REPORT INFORMATION
  Report Type: Report from Study
  Country: DE (occurrence: DE)
  Receive Date: 20150326
  Receipt Date: 20150326
  Transmission Date: 20150721
  Serious: Yes (Hospitalization)
  Sender: FDA-Public Use
  Company Number: DE-ABBVIE-12P-062-0947128-00

PATIENT
  Age: 24 Year
  Sex: Female

DRUGS (3)
  1. TYSAPRI [Concomitant]
     Indication: CROHN^S DISEASE
     Dates: start: 20111109
  2. HUMIRA [Suspect]
     Active Substance: ADALIMUMAB
     Route: 058
     Dates: end: 20091111
  3. HUMIRA [Suspect]
     Active Substance: ADALIMUMAB
     Indication: CROHN^S DISEASE
     Dosage: INDUCTION:  BASELINE
     Route: 058
     Dates: start: 20080408, end: 20080408

REACTIONS (1)
  - Subileus [Unknown]

NARRATIVE: CASE EVENT DATE: 20120206
